FAERS Safety Report 21518968 (Version 1)
Quarter: 2022Q4

REPORT INFORMATION
  Report Type: Spontaneous
  Country: JP (occurrence: JP)
  Receive Date: 20221028
  Receipt Date: 20221028
  Transmission Date: 20230113
  Serious: Yes (Other)
  Sender: FDA-Public Use
  Company Number: JP-NOVARTISPH-NVSJ2022JP100002

PATIENT

DRUGS (2)
  1. AFINITOR [Suspect]
     Active Substance: EVEROLIMUS
     Indication: Tuberous sclerosis complex
     Dosage: UNK
     Route: 048
  2. VIGABATRIN [Concomitant]
     Active Substance: VIGABATRIN
     Indication: Product used for unknown indication
     Dosage: UNK
     Route: 065

REACTIONS (3)
  - Pneumonia [Unknown]
  - Tuberous sclerosis complex associated neuropsychiatric disease [Unknown]
  - Partial seizures [Unknown]
